FAERS Safety Report 7686762-9 (Version None)
Quarter: 2011Q3

REPORT INFORMATION
  Report Type: 
  Country: None (occurrence: None)
  Receive Date: 20110811
  Receipt Date: 20110727
  Transmission Date: 20111222
  Serious: Yes (Other)
  Sender: FDA-Public Use
  Company Number: JP-2011-10807

PATIENT
  Age: 67 Year
  Sex: Male
  Weight: 61 kg

DRUGS (16)
  1. SAMSCA [Suspect]
     Indication: CARDIAC FAILURE CONGESTIVE
     Dosage: 7.5 , 15 MG (MILLIGRAM(S) QD, ORAL
     Route: 048
     Dates: start: 20110509, end: 20110518
  2. SAMSCA [Suspect]
     Indication: CARDIAC FAILURE CONGESTIVE
     Dosage: 7.5 , 15 MG (MILLIGRAM(S) QD, ORAL
     Route: 048
     Dates: start: 20110429, end: 20110508
  3. ISOSORBIDE DINITRATE [Concomitant]
  4. FOLIC ACID [Concomitant]
  5. THYRADIN S (LEVOTHYROXINE SODIUM HYDRATE) [Concomitant]
  6. WARFARIN (WARFARIN POTASSIUM) [Concomitant]
  7. ZOLPIDEM TARTRATE [Concomitant]
  8. ANCARON 9AMIODARONE HYDROCHLORIDE) [Concomitant]
  9. VANCOMYCIN [Concomitant]
  10. FUROSEMIDE [Concomitant]
  11. ASPARA POTASSIIUM (POTASSIUM L-ASPARTATE) [Concomitant]
  12. LANSOPRAZOLE [Concomitant]
  13. MUCOTRON (CARBOCISTEINE) [Concomitant]
  14. ASPIRIN [Concomitant]
  15. MEROPENEM (MEROPENEM HYDRATE) [Concomitant]
  16. NESP (DARBEPOETIN) [Concomitant]

REACTIONS (2)
  - LABORATORY TEST ABNORMAL [None]
  - TOXIC SKIN ERUPTION [None]
